FAERS Safety Report 21045733 (Version 1)
Quarter: 2022Q3

REPORT INFORMATION
  Report Type: Other
  Country: None (occurrence: FR)
  Receive Date: 20220706
  Receipt Date: 20220706
  Transmission Date: 20221027
  Serious: Yes (Other)
  Sender: FDA-Public Use
  Company Number: FR-OrBion Pharmaceuticals Private Limited-2130569

PATIENT
  Age: 49 Year
  Sex: Male

DRUGS (2)
  1. LEVETIRACETAM [Suspect]
     Active Substance: LEVETIRACETAM
     Indication: Epilepsy
     Route: 065
  2. PREGABALIN [Suspect]
     Active Substance: PREGABALIN
     Route: 065

REACTIONS (2)
  - Nicotinic acid deficiency [Recovered/Resolved]
  - Decreased appetite [Recovered/Resolved]
